FAERS Safety Report 4594005-8 (Version None)
Quarter: 2005Q1

REPORT INFORMATION
  Report Type: 
  Country: None (occurrence: None)
  Receive Date: 20050218
  Receipt Date: 20050207
  Transmission Date: 20050727
  Serious: Yes (Hospitalization, Other)
  Sender: FDA-Public Use
  Company Number: 2005013926

PATIENT
  Age: 30 Year
  Sex: Female

DRUGS (6)
  1. LYRICA [Suspect]
     Indication: ILL-DEFINED DISORDER
     Dosage: 1800 MG (1800 MG, 1 IN 1 D), ORAL
     Route: 048
  2. XANOR SR (ALPRAZOLAM) [Suspect]
     Indication: ILL-DEFINED DISORDER
     Dosage: ONCE (18 MG), ORAL
     Route: 048
  3. LAMOTRIGINE [Suspect]
     Indication: ILL-DEFINED DISORDER
     Dosage: ONCE (900 MG), ORAL
     Route: 048
  4. CARISOPRODOL [Suspect]
     Indication: ILL-DEFINED DISORDER
     Dosage: ONCE (1050 MG), ORAL
     Route: 048
  5. CHLORPROTHIXENE HYDROCHLORIDE (CHLORPROTHIXENE HYDROCHLORIDE) [Suspect]
     Indication: ILL-DEFINED DISORDER
     Dosage: ONCE (150 MG), ORAL
     Route: 048
  6. ZOPICLONE (ZOPICLONE) [Suspect]
     Indication: ILL-DEFINED DISORDER
     Dosage: ONCE (45 MG), ORAL
     Route: 048

REACTIONS (11)
  - BASE EXCESS INCREASED [None]
  - COMA [None]
  - DIPLOPIA [None]
  - DRUG TOXICITY [None]
  - EUPHORIC MOOD [None]
  - FEELING DRUNK [None]
  - INTENTIONAL MISUSE [None]
  - INTENTIONAL SELF-INJURY [None]
  - PCO2 INCREASED [None]
  - PO2 DECREASED [None]
  - PUPIL FIXED [None]
